FAERS Safety Report 9748536 (Version 1)
Quarter: 2013Q4

REPORT INFORMATION
  Report Type: Spontaneous
  Country: US (occurrence: None)
  Receive Date: 20131209
  Receipt Date: 20131209
  Transmission Date: 20140711
  Serious: Yes (Other)
  Sender: FDA-Public Use
  Company Number: US-MDCO-13-00048

PATIENT
  Age: 60 Year
  Sex: Male

DRUGS (3)
  1. ANGIOMAX [Suspect]
     Indication: PERCUTANEOUS CORONARY INTERVENTION
     Route: 040
     Dates: start: 201310, end: 201310
  2. ASPIRIN (ACETYLSALICYLIC ACID) (ACETYLSALICYLIC ACID) [Concomitant]
  3. BRILIINTA (TICAGRELOR) (TICAGRELOR) [Concomitant]

REACTIONS (2)
  - Thrombosis in device [None]
  - Chest pain [None]
